FAERS Safety Report 18860793 (Version 2)
Quarter: 2022Q1

REPORT INFORMATION
  Report Type: Spontaneous
  Country: HK (occurrence: HK)
  Receive Date: 20210208
  Receipt Date: 20220328
  Transmission Date: 20220423
  Serious: Yes (Life-Threatening, Hospitalization, Other)
  Sender: FDA-Public Use
  Company Number: HK-SERVIER-S21000881

PATIENT

DRUGS (4)
  1. ONCASPAR [Suspect]
     Active Substance: PEGASPARGASE
     Indication: Acute lymphocytic leukaemia
     Dosage: 1575 U
     Route: 042
     Dates: start: 20200602, end: 20200602
  2. TN UNSPECIFIED [Concomitant]
     Indication: Acute lymphocytic leukaemia
     Dosage: 3 MG, BID
     Route: 048
     Dates: start: 20200612, end: 20200617
  3. TN UNSPECIFIED [Concomitant]
     Indication: Acute lymphocytic leukaemia
     Dosage: 1.2 MG, 3X A WEEK
     Route: 042
     Dates: start: 20200529, end: 20200612
  4. SULFAMETHOXAZOLE\TRIMETHOPRIM [Concomitant]
     Active Substance: SULFAMETHOXAZOLE\TRIMETHOPRIM
     Indication: Antibiotic prophylaxis
     Dosage: 360 MG, BID FRI/SAT/SUN
     Route: 048
     Dates: start: 20200321

REACTIONS (4)
  - Shock [Recovered/Resolved]
  - Pancreatitis necrotising [Recovered/Resolved]
  - Pancreatogenous diabetes [Unknown]
  - Systemic inflammatory response syndrome [Unknown]

NARRATIVE: CASE EVENT DATE: 20200617
